FAERS Safety Report 9801957 (Version 1)
Quarter: 2014Q1

REPORT INFORMATION
  Report Type: Report from Study
  Country: US (occurrence: US)
  Receive Date: 20140107
  Receipt Date: 20140107
  Transmission Date: 20141002
  Serious: Yes (Death, Hospitalization, Other)
  Sender: FDA-Public Use
  Company Number: US-TEVA-454335USA

PATIENT
  Age: 73 Year
  Sex: Female
  Weight: 63.6 kg

DRUGS (2)
  1. DAUNORUBICIN [Suspect]
     Indication: ACUTE MYELOID LEUKAEMIA
     Dosage: DAYS 1-3; 300 MG TOTAL
     Route: 042
     Dates: start: 20131202, end: 20131204
  2. CYTARABINE [Suspect]
     Indication: ACUTE MYELOID LEUKAEMIA
     Dosage: DAYS 1-7, 1155 MG TOTAL DOSE
     Route: 042
     Dates: start: 20131202, end: 20131208

REACTIONS (5)
  - Pneumonia pseudomonal [Fatal]
  - Febrile neutropenia [Not Recovered/Not Resolved]
  - Sepsis [Fatal]
  - Renal failure acute [Fatal]
  - Respiratory failure [Fatal]
